FAERS Safety Report 21028533 (Version 3)
Quarter: 2023Q1

REPORT INFORMATION
  Report Type: Report from Study
  Country: IL (occurrence: IL)
  Receive Date: 20220630
  Receipt Date: 20230123
  Transmission Date: 20230418
  Serious: No
  Sender: FDA-Public Use
  Company Number: IL-JNJFOC-20220660984

PATIENT
  Age: 25 Year
  Sex: Male

DRUGS (2)
  1. ESKETAMINE [Suspect]
     Active Substance: ESKETAMINE
     Indication: Depression
     Dosage: 2 DEVICES?(12 DOSES)?THERAPY DATES: 10/FEB/2022, 14/FEB/2022, 17/FEB/2022, 21/FEB/2022, 24/FEB/2022,
     Dates: start: 20220207, end: 20220317
  2. ESKETAMINE [Suspect]
     Active Substance: ESKETAMINE
     Dosage: 6 DOSES?THERAPY DATES: 24/MAR/2022, 28/MAR/2022, 31/MAR/2022, 04/APR/2022
     Dates: start: 20220321, end: 20220503

REACTIONS (2)
  - Crohn^s disease [Recovering/Resolving]
  - Feeling abnormal [Recovered/Resolved]

NARRATIVE: CASE EVENT DATE: 20220224
